FAERS Safety Report 4967666-9 (Version None)
Quarter: 2006Q2

REPORT INFORMATION
  Report Type: 
  Country: None (occurrence: None)
  Receive Date: 20060410
  Receipt Date: 20051019
  Transmission Date: 20061013
  Serious: Yes (Hospitalization, Disabling, Other)
  Sender: FDA-Public Use
  Company Number: US-MERCK-0510USA08297

PATIENT
  Age: 56 Year
  Sex: Male
  Weight: 99 kg

DRUGS (9)
  1. VIOXX [Suspect]
     Indication: RHEUMATOID ARTHRITIS
     Route: 048
     Dates: start: 20010525, end: 20031202
  2. VIOXX [Suspect]
     Indication: OSTEOARTHRITIS
     Route: 048
     Dates: start: 20010525, end: 20031202
  3. TOPROL-XL [Concomitant]
     Route: 065
  4. PROPRANOLOL HYDROCHLORIDE [Concomitant]
     Route: 065
  5. LISINOPRIL [Concomitant]
     Route: 065
  6. ACETAMINOPHEN [Concomitant]
     Route: 065
  7. DOXYCYCLINE [Concomitant]
     Route: 065
  8. ALLEGRA [Concomitant]
     Route: 065
  9. WELLBUTRIN [Concomitant]
     Route: 065

REACTIONS (15)
  - ANEURYSM [None]
  - ARTERIOSCLEROSIS [None]
  - CARDIAC ANEURYSM [None]
  - CARDIAC DISORDER [None]
  - CEREBROVASCULAR ACCIDENT [None]
  - CHEST PAIN [None]
  - CORONARY ARTERY DISEASE [None]
  - EPISTAXIS [None]
  - GOUT [None]
  - HEART RATE IRREGULAR [None]
  - HYPERTENSION [None]
  - MYOCARDIAL INFARCTION [None]
  - SILENT MYOCARDIAL INFARCTION [None]
  - SLEEP APNOEA SYNDROME [None]
  - THROMBOSIS [None]
